FAERS Safety Report 10044534 (Version 3)
Quarter: 2014Q2

REPORT INFORMATION
  Report Type: Report from Study
  Country: US (occurrence: US)
  Receive Date: 20140328
  Receipt Date: 20140428
  Transmission Date: 20141212
  Serious: Yes (Hospitalization)
  Sender: FDA-Public Use
  Company Number: US-SA-2014SA036328

PATIENT
  Age: 39 Year
  Sex: Female
  Weight: 59.8 kg

DRUGS (1)
  1. AUBAGIO [Suspect]
     Indication: MULTIPLE SCLEROSIS
     Route: 048
     Dates: start: 20140317, end: 20140317

REACTIONS (6)
  - Hypersensitivity [Recovered/Resolved]
  - Rash erythematous [Recovered/Resolved]
  - Rash pruritic [Recovered/Resolved]
  - Dizziness [Recovered/Resolved]
  - Tongue disorder [Recovered/Resolved]
  - Mouth ulceration [Recovered/Resolved]
